FAERS Safety Report 9461446 (Version 2)
Quarter: 2013Q3

REPORT INFORMATION
  Report Type: Report from Study
  Country: BR (occurrence: BR)
  Receive Date: 20130816
  Receipt Date: 20130827
  Transmission Date: 20140515
  Serious: Yes (Hospitalization, Other)
  Sender: FDA-Public Use
  Company Number: PHHY2013BR085807

PATIENT
  Age: 56 Year
  Sex: Male
  Weight: 88.5 kg

DRUGS (17)
  1. MYFORTIC [Suspect]
     Indication: RENAL TRANSPLANT
     Dosage: 720 MG, BID
     Route: 048
     Dates: start: 20120106
  2. CICLOSPORIN [Suspect]
     Indication: RENAL TRANSPLANT
     Dosage: 250 MG, BID
     Route: 048
     Dates: start: 20120113
  3. CICLOSPORIN [Suspect]
     Dosage: UNK
  4. CICLOSPORIN [Suspect]
     Dosage: 250 MG, BID
     Route: 048
     Dates: end: 20120619
  5. TACROLIMUS [Suspect]
     Indication: RENAL TRANSPLANT
     Dosage: 9 MG, BID
     Route: 048
     Dates: start: 20120106, end: 20120112
  6. PREDNISONE [Suspect]
     Indication: RENAL TRANSPLANT
     Dosage: 80 MG, DAILY
     Route: 048
     Dates: start: 20120106
  7. THYMOGLOBULIN [Concomitant]
     Indication: IMMUNOSUPPRESSION
     Dosage: 90 MG, QD
     Route: 042
     Dates: start: 20120106, end: 20120113
  8. GANCICLOVIR [Concomitant]
     Indication: PROPHYLAXIS
     Dosage: 210 MG, DAILY
     Route: 042
     Dates: start: 20120106, end: 20120120
  9. EVEROLIMUS [Concomitant]
     Indication: RENAL TRANSPLANT
     Dosage: 1.5 MG, UNK
     Route: 048
     Dates: start: 20120522
  10. EVEROLIMUS [Concomitant]
     Dosage: 1.5 MG /DAY
     Route: 048
  11. EVEROLIMUS [Concomitant]
     Dosage: 1.5 MG, UNK
     Route: 048
  12. EVEROLIMUS [Concomitant]
     Dosage: 2 MG, PER DAY
     Route: 048
  13. CEFTRIAXONE [Concomitant]
     Indication: PROPHYLAXIS
     Dosage: 2 G, DAILY
     Route: 042
     Dates: start: 20120106, end: 20120113
  14. BACTRIM [Concomitant]
     Indication: PROPHYLAXIS URINARY TRACT INFECTION
     Dosage: 480 MG, DAILY
     Route: 048
     Dates: start: 20120106, end: 20120706
  15. CIPROFLOXACIN [Concomitant]
     Indication: URINARY TRACT INFECTION
     Dosage: 250 MG, BID
     Route: 048
     Dates: start: 20120119, end: 20120129
  16. AMLODIPINE [Concomitant]
     Indication: HYPERTENSION
     Dosage: 10 MG,DAILY
     Route: 048
     Dates: start: 20120107
  17. ATENOLOL [Concomitant]
     Indication: HYPERTENSION
     Dosage: 50 MG, DAILY
     Route: 048
     Dates: start: 20120107

REACTIONS (5)
  - Glomerulosclerosis [Recovered/Resolved]
  - Kidney fibrosis [Not Recovered/Not Resolved]
  - Renal atrophy [Not Recovered/Not Resolved]
  - Nephrolithiasis [Not Recovered/Not Resolved]
  - Hyperglycaemia [Not Recovered/Not Resolved]
